FAERS Safety Report 5210665-2 (Version None)
Quarter: 2007Q1

REPORT INFORMATION
  Report Type: 
  Country: None (occurrence: None)
  Receive Date: 20070117
  Receipt Date: 20070116
  Transmission Date: 20070707
  Serious: Yes (Hospitalization, Disabling, Other)
  Sender: FDA-Public Use
  Company Number: US-GLAXOSMITHKLINE-A0627486A

PATIENT
  Age: 21 Year
  Sex: Female

DRUGS (5)
  1. ARRANON [Suspect]
     Dosage: 1500MG ALTERNATE DAYS
     Route: 042
  2. CYCLOPHOSPHAMIDE [Concomitant]
  3. METHOTREXATE [Concomitant]
  4. UNKNOWN MEDICATION [Concomitant]
  5. VANCOMYCIN [Concomitant]

REACTIONS (7)
  - GAIT DISTURBANCE [None]
  - HYPOAESTHESIA [None]
  - MONOPLEGIA [None]
  - MUSCULAR WEAKNESS [None]
  - NEUROPATHY [None]
  - PERIPHERAL SENSORY NEUROPATHY [None]
  - SENSORY LOSS [None]
